FAERS Safety Report 6133051-X (Version None)
Quarter: 2009Q1

REPORT INFORMATION
  Report Type: 
  Country: None (occurrence: None)
  Receive Date: 20090325
  Receipt Date: 20090325
  Transmission Date: 20090719
  Serious: No
  Sender: FDA-Public Use
  Company Number: None

PATIENT
  Sex: Female
  Weight: 79.3795 kg

DRUGS (2)
  1. DETROL LA [Suspect]
     Indication: INCONTINENCE
     Dosage: 1 TABLET DAILY PO
     Route: 048
     Dates: start: 20081111, end: 20090110
  2. VESICARE [Suspect]
     Indication: INCONTINENCE
     Dosage: 1 TABLET NIGHTLY PO
     Route: 048
     Dates: start: 20090211, end: 20090324

REACTIONS (5)
  - ALOPECIA [None]
  - DRY MOUTH [None]
  - DYSPNOEA [None]
  - NASAL DRYNESS [None]
  - SINUS DISORDER [None]
